FAERS Safety Report 6257644-4 (Version None)
Quarter: 2009Q3

REPORT INFORMATION
  Report Type: 
  Country: None (occurrence: None)
  Receive Date: 20090706
  Receipt Date: 20090622
  Transmission Date: 20100115
  Serious: Yes (Other)
  Sender: FDA-Public Use
  Company Number: CA-MYLANLABS-2009S1010996

PATIENT
  Age: 59 Year
  Sex: Female

DRUGS (15)
  1. CLARITHROMYCIN [Suspect]
     Indication: BRONCHITIS
     Dosage: 10-DAY COURSE OF CLARITHROMYCIN 500MG TWICE DAILY
  2. TACROLIMUS [Interacting]
     Indication: IMMUNOSUPPRESSANT DRUG THERAPY
     Dosage: TACROLIMUS 1.5MG TWICE DAILY
  3. MYCOPHENOLATE MOFETIL [Concomitant]
     Indication: IMMUNOSUPPRESSANT DRUG THERAPY
  4. ATORVASTATIN CALCIUM [Concomitant]
  5. CLOPIDOGREL [Concomitant]
  6. ASPIRIN [Concomitant]
  7. LEVOTHYROXINE SODIUM [Concomitant]
  8. DILTIAZEM [Concomitant]
     Dosage: DILTIAZEM EXTENDED-RELEASE
  9. HYDROCHLOROTHIAZIDE [Concomitant]
  10. QUINAPRIL [Concomitant]
  11. FOLIC ACID [Concomitant]
  12. POTASSIUM CHLORIDE [Concomitant]
     Dosage: POTASSIUM CHLORIDE SUSTAINED-RELEASE
  13. CALCIUM CARBONATE [Concomitant]
  14. GLUCOSAMINE [Concomitant]
  15. VITAMINS [Concomitant]
     Dosage: VITAMIN D 400 UNITS/DAY

REACTIONS (2)
  - DRUG INTERACTION [None]
  - NEPHROPATHY TOXIC [None]
